FAERS Safety Report 24018508 (Version 1)
Quarter: 2024Q2

REPORT INFORMATION
  Report Type: Spontaneous
  Country: GB (occurrence: GB)
  Receive Date: 20240627
  Receipt Date: 20240627
  Transmission Date: 20240715
  Serious: Yes (Other)
  Sender: FDA-Public Use
  Company Number: GB-Pharmaand-2024000477

PATIENT
  Sex: Male

DRUGS (1)
  1. PEGASYS [Suspect]
     Active Substance: PEGINTERFERON ALFA-2A
     Indication: Product used for unknown indication
     Dosage: 180 MICROGRAM EVERY 1 WEEK(S)
     Route: 058

REACTIONS (5)
  - Hepatic pain [Unknown]
  - Mental disorder [Unknown]
  - Disturbance in attention [Unknown]
  - Eating disorder [Unknown]
  - Insomnia [Unknown]
